FAERS Safety Report 11631461 (Version 4)
Quarter: 2016Q4

REPORT INFORMATION
  Report Type: Spontaneous
  Country: DK (occurrence: DK)
  Receive Date: 20151015
  Receipt Date: 20161101
  Transmission Date: 20170206
  Serious: Yes (Hospitalization, Other)
  Sender: FDA-Public Use
  Company Number: DK-AMGEN-DNKNI2015105238

PATIENT
  Age: 66 Year
  Sex: Female
  Weight: 79 kg

DRUGS (8)
  1. XELODA [Concomitant]
     Active Substance: CAPECITABINE
     Dosage: UNK
     Dates: start: 201508
  2. IBUMETIN [Concomitant]
     Active Substance: IBUPROFEN
     Indication: PAIN
     Dosage: 600 MG, UNK
  3. XGEVA [Suspect]
     Active Substance: DENOSUMAB
     Indication: METASTASES TO BONE
     Dosage: 120 MG, Q4WK
     Route: 058
     Dates: start: 20140121
  4. FASLODEX [Concomitant]
     Active Substance: FULVESTRANT
     Dosage: UNK
     Dates: start: 201405
  5. BONDRONAT [Suspect]
     Active Substance: IBANDRONIC ACID
     Indication: METASTASES TO BONE
     Dosage: 50 MG, QD
     Route: 065
     Dates: start: 20110128, end: 20140122
  6. CHLORHEXIDINE [Concomitant]
     Active Substance: CHLORHEXIDINE
     Dosage: 0.2 %, TID
  7. EXEMESTAN [Concomitant]
     Active Substance: EXEMESTANE
     Dosage: UNK
     Dates: start: 201212
  8. TAMOXIFEN [Concomitant]
     Active Substance: TAMOXIFEN
     Dosage: UNK
     Dates: start: 2008, end: 201508

REACTIONS (1)
  - Osteonecrosis of jaw [Recovered/Resolved]

NARRATIVE: CASE EVENT DATE: 20150315
